FAERS Safety Report 6168989-0 (Version None)
Quarter: 2009Q2

REPORT INFORMATION
  Report Type: 
  Country: None (occurrence: None)
  Receive Date: 20090424
  Receipt Date: 20090424
  Transmission Date: 20091009
  Serious: Yes (Other)
  Sender: FDA-Public Use
  Company Number: None

PATIENT
  Sex: Female
  Weight: 83.9154 kg

DRUGS (2)
  1. DESFLURANE 240 ML BAXTER [Suspect]
     Indication: ANAESTHESIA
     Dosage: 6% CONTINUOUS INTRATRACHEAL 0815 TO 1000 HRS
     Route: 039
  2. CEFAZOLIN [Suspect]
     Indication: PROPHYLAXIS
     Dosage: 1GM ONE TIME IV
     Route: 042
     Dates: start: 20090415, end: 20090415

REACTIONS (2)
  - FLUSHING [None]
  - HYPOVENTILATION [None]
